FAERS Safety Report 8913221 (Version 1)
Quarter: 2012Q4

REPORT INFORMATION
  Report Type: 
  Country: US (occurrence: US)
  Receive Date: 20121116
  Receipt Date: 20121116
  Transmission Date: 20130627
  Serious: No
  Sender: FDA-Public Use
  Company Number: US-BIOGENIDEC-2012BI051768

PATIENT
  Age: 28 Year
  Sex: Female

DRUGS (2)
  1. AVONEX [Suspect]
     Indication: MULTIPLE SCLEROSIS
     Route: 030
     Dates: start: 20121022
  2. SEASONIQUE [Concomitant]
     Indication: CONTRACEPTION

REACTIONS (2)
  - Menstruation delayed [Unknown]
  - Urticaria [Not Recovered/Not Resolved]
